FAERS Safety Report 10199826 (Version 2)
Quarter: 2017Q2

REPORT INFORMATION
  Report Type: Spontaneous
  Country: US (occurrence: US)
  Receive Date: 20140527
  Receipt Date: 20170602
  Transmission Date: 20170829
  Serious: No
  Sender: FDA-Public Use
  Company Number: US-NOVEN-14US008991

PATIENT

DRUGS (4)
  1. INTUNIV [Concomitant]
     Active Substance: GUANFACINE HYDROCHLORIDE
     Dosage: 2 MG, UNK
  2. DAYTRANA [Suspect]
     Active Substance: METHYLPHENIDATE
     Indication: ATTENTION DEFICIT/HYPERACTIVITY DISORDER
     Dosage: PRESCRIBED TO APPLY 30 + 10 MG PATCHES, FOR 9 HOURS
     Route: 062
     Dates: start: 2011
  3. DAYTRANA [Suspect]
     Active Substance: METHYLPHENIDATE
     Dosage: 40 MG, UNKNOWN
     Route: 062
     Dates: end: 201610
  4. DAYTRANA [Suspect]
     Active Substance: METHYLPHENIDATE
     Dosage: 40 MG (USING FOUR 10 MG PATCHES TOGETHER), UNKNOWN
     Route: 062
     Dates: start: 201610

REACTIONS (5)
  - Product quality issue [Not Recovered/Not Resolved]
  - No adverse event [Unknown]
  - Off label use [Unknown]
  - Prescribed overdose [Not Recovered/Not Resolved]
  - Wrong technique in product usage process [Not Recovered/Not Resolved]

NARRATIVE: CASE EVENT DATE: 2014
